FAERS Safety Report 16825170 (Version 1)
Quarter: 2019Q3

REPORT INFORMATION
  Report Type: Report from Study
  Country: BR (occurrence: BR)
  Receive Date: 20190919
  Receipt Date: 20190919
  Transmission Date: 20191005
  Serious: Yes (Other)
  Sender: FDA-Public Use
  Company Number: PHHY2019BR121707

PATIENT
  Sex: Male

DRUGS (2)
  1. GILENYA [Suspect]
     Active Substance: FINGOLIMOD HYDROCHLORIDE
     Dosage: UNK
     Route: 065
  2. GILENYA [Suspect]
     Active Substance: FINGOLIMOD HYDROCHLORIDE
     Indication: PRODUCT USED FOR UNKNOWN INDICATION
     Dosage: UNK
     Route: 065
     Dates: start: 20190423

REACTIONS (13)
  - Abdominal distension [Unknown]
  - Renal cancer [Unknown]
  - Intestinal obstruction [Unknown]
  - Bradycardia [Unknown]
  - Insomnia [Unknown]
  - Blood pressure increased [Unknown]
  - Blood pressure abnormal [Unknown]
  - Visual impairment [Unknown]
  - Back pain [Unknown]
  - Hepatic steatosis [Unknown]
  - Liver disorder [Unknown]
  - Renal disorder [Unknown]
  - Eye disorder [Unknown]
